FAERS Safety Report 23409719 (Version 2)
Quarter: 2024Q1

REPORT INFORMATION
  Report Type: Spontaneous
  Country: US (occurrence: US)
  Receive Date: 20240117
  Receipt Date: 20240311
  Transmission Date: 20240410
  Serious: No
  Sender: FDA-Public Use
  Company Number: US-PFIZER INC-202400013791

PATIENT
  Age: 66 Year
  Sex: Female
  Weight: 81.65 kg

DRUGS (2)
  1. PREMARIN [Suspect]
     Active Substance: ESTROGENS, CONJUGATED
     Indication: Vulvovaginal dryness
     Dosage: UNK UNK, 2X/WEEK
     Dates: start: 202301
  2. PREMARIN [Suspect]
     Active Substance: ESTROGENS, CONJUGATED
     Indication: Urinary tract infection

REACTIONS (4)
  - Headache [Unknown]
  - Off label use [Unknown]
  - Drug effective for unapproved indication [Unknown]
  - Wrong strength [Unknown]
